FAERS Safety Report 8377717-X (Version None)
Quarter: 2012Q2

REPORT INFORMATION
  Report Type: 
  Country: None (occurrence: None)
  Receive Date: 20120522
  Receipt Date: 20120516
  Transmission Date: 20120825
  Serious: Yes (Hospitalization)
  Sender: FDA-Public Use
  Company Number: JP-GLAXOSMITHKLINE-B0762431A

PATIENT
  Sex: Male

DRUGS (9)
  1. LAMIVUDINE (EPIVIR HBV) [Suspect]
     Dosage: 50MG PER DAY
     Route: 048
     Dates: start: 20111102
  2. HEPSERA [Suspect]
     Indication: HEPATIC CIRRHOSIS
     Dosage: 10MG PER DAY
     Route: 048
     Dates: start: 20060501, end: 20111101
  3. LANSOPRAZOLE [Concomitant]
     Dosage: 15MG PER DAY
     Route: 048
     Dates: start: 20070301, end: 20100901
  4. LAMIVUDINE (EPIVIR HBV) [Suspect]
     Indication: HEPATIC CIRRHOSIS
     Dosage: 100MG PER DAY
     Route: 048
     Dates: start: 20010101, end: 20111101
  5. URSO 250 [Concomitant]
     Dosage: 400MG PER DAY
     Route: 048
     Dates: start: 20000501
  6. FERROUS CITRATE [Concomitant]
     Dosage: 50MG PER DAY
     Route: 048
     Dates: start: 20100301, end: 20100901
  7. DIOVAN [Concomitant]
     Dosage: 80MG PER DAY
     Route: 048
     Dates: start: 20110801
  8. HEPSERA [Suspect]
     Dosage: 5MG PER DAY
     Route: 048
     Dates: start: 20111102
  9. LIVACT [Concomitant]
     Dosage: 4IUAX PER DAY
     Route: 048
     Dates: start: 20000501

REACTIONS (9)
  - ANAEMIA [None]
  - VARICES OESOPHAGEAL [None]
  - ANGIODYSPLASIA [None]
  - LARGE INTESTINAL HAEMORRHAGE [None]
  - SPLENOMEGALY [None]
  - GLOMERULAR FILTRATION RATE DECREASED [None]
  - PANCYTOPENIA [None]
  - RENAL IMPAIRMENT [None]
  - BLOOD CREATININE INCREASED [None]
